FAERS Safety Report 6291217-2 (Version None)
Quarter: 2009Q3

REPORT INFORMATION
  Report Type: 
  Country: None (occurrence: None)
  Receive Date: 20090729
  Receipt Date: 20090729
  Transmission Date: 20100115
  Serious: No
  Sender: FDA-Public Use
  Company Number: None

PATIENT
  Age: 52 Year
  Sex: Male
  Weight: 63.5036 kg

DRUGS (2)
  1. NORVIR [Suspect]
     Indication: ENZYME ABNORMALITY
     Dosage: 1 SOFTGEL CAPULE DAILY PO
     Route: 048
     Dates: start: 20010101, end: 20090101
  2. NASAREL [Suspect]
     Indication: CHRONIC SINUSITIS
     Dosage: 116 MCG BID NASAL
     Route: 045
     Dates: start: 20020101, end: 20070101

REACTIONS (2)
  - IMMUNOSUPPRESSION [None]
  - INHIBITORY DRUG INTERACTION [None]
